FAERS Safety Report 23579288 (Version 1)
Quarter: 2024Q1

REPORT INFORMATION
  Report Type: Report from Study
  Country: CA (occurrence: None)
  Receive Date: 20240229
  Receipt Date: 20240229
  Transmission Date: 20240409
  Serious: Yes (Hospitalization, Other)
  Sender: FDA-Public Use
  Company Number: 2024A046261

PATIENT
  Sex: Female

DRUGS (6)
  1. FASENRA [Suspect]
     Active Substance: BENRALIZUMAB
     Indication: Asthma
     Route: 058
     Dates: start: 20230620
  2. ADVAIR HFA [Concomitant]
     Active Substance: FLUTICASONE PROPIONATE\SALMETEROL XINAFOATE
  3. PREDNISONE [Concomitant]
     Active Substance: PREDNISONE
  4. SINGULAIR [Concomitant]
     Active Substance: MONTELUKAST SODIUM
  5. INCRUSE ELLIPTA [Concomitant]
     Active Substance: UMECLIDINIUM BROMIDE
     Dosage: 62.5
     Dates: start: 20230601
  6. BREO ELLIPTA [Concomitant]
     Active Substance: FLUTICASONE FUROATE\VILANTEROL TRIFENATATE
     Dates: start: 20230601

REACTIONS (3)
  - Pulmonary fibrosis [Unknown]
  - Oxygen saturation decreased [Unknown]
  - Drug ineffective [Unknown]
